FAERS Safety Report 25646254 (Version 1)
Quarter: 2025Q3

REPORT INFORMATION
  Report Type: Report from Study
  Country: CL (occurrence: CL)
  Receive Date: 20250805
  Receipt Date: 20250805
  Transmission Date: 20251021
  Serious: Yes (Death, Hospitalization)
  Sender: ABBVIE
  Company Number: CL-ABBVIE-6401644

PATIENT
  Age: 81 Year
  Sex: Female

DRUGS (1)
  1. RINVOQ [Suspect]
     Active Substance: UPADACITINIB
     Indication: Rheumatoid arthritis
     Dosage: RINVOQ 15MG X 30 TABLETS
     Route: 048
     Dates: start: 20250525, end: 20250718

REACTIONS (3)
  - Endocarditis bacterial [Fatal]
  - Aortic dilatation [Fatal]
  - Herpes virus infection [Not Recovered/Not Resolved]

NARRATIVE: CASE EVENT DATE: 20250701
